FAERS Safety Report 25199498 (Version 1)
Quarter: 2025Q2

REPORT INFORMATION
  Report Type: Spontaneous
  Country: FR (occurrence: FR)
  Receive Date: 20250415
  Receipt Date: 20250415
  Transmission Date: 20250717
  Serious: Yes (Hospitalization)
  Sender: MERCK SHARP AND DOHME
  Company Number: None

PATIENT
  Age: 74 Year
  Sex: Female
  Weight: 72 kg

DRUGS (12)
  1. KEYTRUDA [Suspect]
     Active Substance: PEMBROLIZUMAB
     Indication: Invasive lobular breast carcinoma
     Dosage: 2 CURES RECEIVED
     Route: 042
     Dates: start: 20241001, end: 20241030
  2. SPIRONOLACTONE [Concomitant]
     Active Substance: SPIRONOLACTONE
  3. RIVAROXABAN [Concomitant]
     Active Substance: RIVAROXABAN
     Indication: Von Willebrand^s disease
  4. FOLIC ACID [Concomitant]
     Active Substance: FOLIC ACID
  5. CARBOPLATIN [Concomitant]
     Active Substance: CARBOPLATIN
     Indication: Triple negative breast cancer
     Dates: start: 20241001
  6. OXYCODONE [Concomitant]
     Active Substance: OXYCODONE
     Indication: Cancer pain
     Dosage: EXTENDED RELEASE
  7. OXYCODONE [Concomitant]
     Active Substance: OXYCODONE
     Indication: Cancer pain
     Dosage: IF NECESSARY
  8. ATENOLOL [Concomitant]
     Active Substance: ATENOLOL
  9. PACLITAXEL [Concomitant]
     Active Substance: PACLITAXEL
     Indication: Triple negative breast cancer
     Dates: start: 20241001
  10. TRIMEBUTINE [Concomitant]
     Active Substance: TRIMEBUTINE
  11. LOXAPINE [Concomitant]
     Active Substance: LOXAPINE
  12. GABAPENTIN [Concomitant]
     Active Substance: GABAPENTIN
     Indication: Neuralgia

REACTIONS (1)
  - Lichenoid keratosis [Recovering/Resolving]

NARRATIVE: CASE EVENT DATE: 20241121
